FAERS Safety Report 13758561 (Version 1)
Quarter: 2017Q3

REPORT INFORMATION
  Report Type: Spontaneous
  Country: US (occurrence: US)
  Receive Date: 20170716
  Receipt Date: 20170716
  Transmission Date: 20171127
  Serious: Yes (Disabling)
  Sender: FDA-Public Use
  Company Number: None

PATIENT
  Age: 39 Year
  Sex: Male
  Weight: 77.4 kg

DRUGS (2)
  1. HUMIRA [Concomitant]
     Active Substance: ADALIMUMAB
  2. COSENTYX [Suspect]
     Active Substance: SECUKINUMAB

REACTIONS (4)
  - Inflammatory bowel disease [None]
  - Diarrhoea [None]
  - Haematochezia [None]
  - Abdominal pain [None]

NARRATIVE: CASE EVENT DATE: 20170117
